FAERS Safety Report 5277774-3 (Version None)
Quarter: 2007Q1

REPORT INFORMATION
  Report Type: 
  Country: None (occurrence: None)
  Receive Date: 20070327
  Receipt Date: 20070319
  Transmission Date: 20070707
  Serious: Yes (Other)
  Sender: FDA-Public Use
  Company Number: GB-PFIZER INC-2006131199

PATIENT
  Age: 36 Year
  Sex: Female
  Weight: 83 kg

DRUGS (5)
  1. FLUCONAZOLE [Suspect]
     Indication: VAGINAL CANDIDIASIS
     Route: 048
  2. ERYTHROMYCIN [Concomitant]
     Indication: PHARYNGITIS
     Route: 048
     Dates: start: 20060619, end: 20060627
  3. FLUCONAZOLE [Concomitant]
     Dates: start: 20060711, end: 20060711
  4. SERTRALINE [Concomitant]
     Indication: DEPRESSION
     Dosage: DAILY DOSE:100MG
     Route: 048
     Dates: start: 20060516
  5. TEMAZEPAM [Concomitant]
     Indication: INSOMNIA
     Dosage: DAILY DOSE:10MG
     Route: 048
     Dates: start: 20060619, end: 20060703

REACTIONS (2)
  - PHARYNGEAL OEDEMA [None]
  - SWOLLEN TONGUE [None]
